FAERS Safety Report 23135254 (Version 1)
Quarter: 2023Q4

REPORT INFORMATION
  Report Type: Report from Study
  Country: US (occurrence: US)
  Receive Date: 20231101
  Receipt Date: 20231101
  Transmission Date: 20240110
  Serious: Yes (Other)
  Sender: FDA-Public Use
  Company Number: US-OTSUKA-2023_028015

PATIENT
  Sex: Male

DRUGS (2)
  1. TOLVAPTAN [Suspect]
     Active Substance: TOLVAPTAN
     Indication: Congenital cystic kidney disease
     Dosage: 45 MG (FOR A MONTH)
     Route: 065
  2. TOLVAPTAN [Suspect]
     Active Substance: TOLVAPTAN
     Dosage: 15 MG (FOR A MONTH)
     Route: 065

REACTIONS (5)
  - Nephritis allergic [Unknown]
  - Blood phosphorus increased [Unknown]
  - Blood creatinine increased [Recovered/Resolved]
  - Blood potassium increased [Unknown]
  - Glomerular filtration rate decreased [Recovering/Resolving]
